FAERS Safety Report 24151132 (Version 1)
Quarter: 2024Q3

REPORT INFORMATION
  Report Type: Spontaneous
  Country: US (occurrence: US)
  Receive Date: 20240730
  Receipt Date: 20240730
  Transmission Date: 20241017
  Serious: Yes (Hospitalization, Other)
  Sender: RANBAXY
  Company Number: US-SUN PHARMACEUTICAL INDUSTRIES LTD-2024R1-458448

PATIENT
  Age: 59 Year
  Sex: Male

DRUGS (6)
  1. LITHIUM [Suspect]
     Active Substance: LITHIUM
     Indication: Product used for unknown indication
     Dosage: 900 MILLIGRAM, DAILY
     Route: 065
  2. SERTRALINE [Suspect]
     Active Substance: SERTRALINE HYDROCHLORIDE
     Indication: Product used for unknown indication
     Dosage: 200 MILLIGRAM
     Route: 065
  3. RISPERIDONE [Suspect]
     Active Substance: RISPERIDONE
     Indication: Product used for unknown indication
     Dosage: 5 MILLIGRAM
     Route: 065
  4. CAFFEINE [Suspect]
     Active Substance: CAFFEINE
     Indication: Product used for unknown indication
     Dosage: 1027 MILLIGRAM
     Route: 065
  5. CAFFEINE [Suspect]
     Active Substance: CAFFEINE
     Dosage: 129 MILLIGRAM, DAILY
     Route: 065
  6. CAFFEINE [Suspect]
     Active Substance: CAFFEINE
     Dosage: 1027 MILLIGRAM
     Route: 065

REACTIONS (2)
  - Condition aggravated [Unknown]
  - Drug level increased [Unknown]
